FAERS Safety Report 4666235-8 (Version None)
Quarter: 2005Q2

REPORT INFORMATION
  Report Type: 
  Country: None (occurrence: None)
  Receive Date: 20050517
  Receipt Date: 20050517
  Transmission Date: 20051028
  Serious: Yes (Life-Threatening, Hospitalization, Disabling)
  Sender: FDA-Public Use
  Company Number: None

PATIENT
  Age: 27 Year
  Sex: Female
  Weight: 90.7194 kg

DRUGS (2)
  1. ZOLOFT [Suspect]
     Indication: DEPRESSION
     Dosage: 50 MG 1X DAY
  2. SERZONE [Suspect]

REACTIONS (3)
  - DELUSION [None]
  - HALLUCINATION [None]
  - TREATMENT NONCOMPLIANCE [None]
